FAERS Safety Report 6026956-1 (Version None)
Quarter: 2009Q1

REPORT INFORMATION
  Report Type: 
  Country: None (occurrence: None)
  Receive Date: 20090105
  Receipt Date: 20081223
  Transmission Date: 20090719
  Serious: Yes (Hospitalization)
  Sender: FDA-Public Use
  Company Number: PHHY2008FR32933

PATIENT
  Sex: Female

DRUGS (4)
  1. LOTENSIN HCT [Suspect]
     Dosage: 30 DF, ONCE/SINGLE
     Route: 048
     Dates: start: 20081113, end: 20081113
  2. LAROXYL [Suspect]
     Indication: DEPRESSION
     Dosage: 800 MG DAILY
     Route: 048
     Dates: start: 20081113, end: 20081113
  3. SERESTA [Suspect]
     Indication: MENTAL DISORDER
     Dosage: 1000 MG DAILY
     Dates: start: 20081113, end: 20081113
  4. REVIA [Suspect]
     Indication: ALCOHOLISM
     Dosage: 1400 MG, ONCE/SINGLE
     Route: 048
     Dates: start: 20081113, end: 20081113

REACTIONS (7)
  - ALCOHOL POISONING [None]
  - BLOOD ALCOHOL ABNORMAL [None]
  - COMA [None]
  - DRUG LEVEL INCREASED [None]
  - DRUG TOXICITY [None]
  - EXTUBATION [None]
  - X-RAY ABNORMAL [None]
